FAERS Safety Report 11197229 (Version 1)
Quarter: 2015Q2

REPORT INFORMATION
  Report Type: Spontaneous
  Country: US (occurrence: US)
  Receive Date: 20150617
  Receipt Date: 20150617
  Transmission Date: 20150821
  Serious: No
  Sender: FDA-Public Use
  Company Number: US-SA-2014SA167429

PATIENT
  Sex: Female

DRUGS (2)
  1. PRENATAL VITAMINS [Concomitant]
     Active Substance: VITAMINS
     Dates: start: 2011, end: 2012
  2. CEREZYME [Suspect]
     Active Substance: IMIGLUCERASE
     Indication: GAUCHER^S DISEASE
     Dosage: DOSE:29 UNIT(S)/KILOGRAM BODYWEIGHT
     Route: 042

REACTIONS (2)
  - Exposure during pregnancy [Unknown]
  - Platelet count decreased [Unknown]
